FAERS Safety Report 25744819 (Version 1)
Quarter: 2025Q3

REPORT INFORMATION
  Report Type: Spontaneous
  Country: CA (occurrence: CA)
  Receive Date: 20250901
  Receipt Date: 20250901
  Transmission Date: 20251020
  Serious: Yes (Other)
  Sender: CELLTRION
  Company Number: CA-CELLTRION INC.-2025CA030622

PATIENT

DRUGS (2)
  1. OMLYCLO [Suspect]
     Active Substance: OMALIZUMAB-IGEC
     Indication: Product used for unknown indication
     Dosage: 300MG Q4W / 1ST DOSE
     Dates: start: 20250610
  2. OMLYCLO [Suspect]
     Active Substance: OMALIZUMAB-IGEC
     Dosage: 300MG Q4W - LD 05 AUG 2025
     Dates: start: 20250805

REACTIONS (1)
  - Breast cancer [Unknown]
